FAERS Safety Report 4405289-0 (Version None)
Quarter: 2004Q3

REPORT INFORMATION
  Report Type: 
  Country: None (occurrence: None)
  Receive Date: 20040723
  Receipt Date: 20040702
  Transmission Date: 20050211
  Serious: Yes (Other)
  Sender: FDA-Public Use
  Company Number: ES-AMGEN-US083098

PATIENT
  Sex: Female

DRUGS (4)
  1. ENBREL [Suspect]
     Indication: RHEUMATOID ARTHRITIS
     Route: 058
     Dates: start: 20010115, end: 20040524
  2. PREDNISONE [Concomitant]
     Dates: start: 19970326
  3. CELECOXIB [Concomitant]
     Dates: start: 20010219
  4. CALCIUM CARBONATE [Concomitant]
     Dates: start: 19980819

REACTIONS (1)
  - MALIGNANT MELANOMA IN SITU [None]
